FAERS Safety Report 9428264 (Version 1)
Quarter: 2013Q3

REPORT INFORMATION
  Report Type: Spontaneous
  Country: FR (occurrence: GB)
  Receive Date: 20130730
  Receipt Date: 20130730
  Transmission Date: 20140515
  Serious: Yes (Life-Threatening, Hospitalization)
  Sender: FDA-Public Use
  Company Number: GB-FRI-1000046932

PATIENT
  Age: 49 Year
  Sex: Male

DRUGS (4)
  1. CAMPRAL [Suspect]
     Dosage: 999 MG
     Route: 048
  2. MIRTAZAPINE [Concomitant]
  3. ZOPICLONE [Concomitant]
  4. RISPERIDONE [Concomitant]

REACTIONS (1)
  - Cerebrovascular accident [Recovered/Resolved with Sequelae]
